FAERS Safety Report 4682080-1 (Version None)
Quarter: 2005Q2

REPORT INFORMATION
  Report Type: 
  Country: None (occurrence: None)
  Receive Date: 20050602
  Receipt Date: 20040830
  Transmission Date: 20051028
  Serious: Yes (Other)
  Sender: FDA-Public Use
  Company Number: 379157

PATIENT
  Age: 52 Year
  Sex: Male
  Weight: 56.7 kg

DRUGS (1)
  1. LARIAM [Suspect]
     Indication: MALARIA PROPHYLAXIS
     Dosage: ORAL
     Route: 048
     Dates: start: 20040815, end: 20040822

REACTIONS (4)
  - ANXIETY [None]
  - FEAR [None]
  - PARANOIA [None]
  - WEIGHT DECREASED [None]
